FAERS Safety Report 8132444-9 (Version None)
Quarter: 2012Q1

REPORT INFORMATION
  Report Type: 
  Country: None (occurrence: None)
  Receive Date: 20120213
  Receipt Date: 20120206
  Transmission Date: 20120608
  Serious: Yes (Hospitalization)
  Sender: FDA-Public Use
  Company Number: US-BAYER-2011-030137

PATIENT
  Age: 40 Year
  Sex: Female
  Weight: 72.562 kg

DRUGS (3)
  1. NAPROXEN (ALEVE) [Concomitant]
  2. YAZ [Suspect]
     Indication: PREMENSTRUAL SYNDROME
     Dosage: UNK
     Dates: start: 20080101, end: 20090101
  3. IBUPROFEN (ADVIL) [Concomitant]

REACTIONS (7)
  - PAIN [None]
  - HYSTERECTOMY [None]
  - PSYCHOLOGICAL TRAUMA [None]
  - PULMONARY EMBOLISM [None]
  - EMOTIONAL DISTRESS [None]
  - ANXIETY [None]
  - INJURY [None]
